FAERS Safety Report 8889281 (Version 1)
Quarter: 2012Q4

REPORT INFORMATION
  Report Type: 
  Country: US (occurrence: US)
  Receive Date: 20121106
  Receipt Date: 20121106
  Transmission Date: 20130627
  Serious: Yes (Hospitalization)
  Sender: FDA-Public Use
  Company Number: US-ELI_LILLY_AND_COMPANY-US201210009850

PATIENT
  Sex: Male

DRUGS (3)
  1. ADCIRCA [Suspect]
     Dosage: UNK
     Route: 065
  2. REMODULIN [Concomitant]
  3. LETAIRIS [Concomitant]
     Indication: PULMONARY HYPERTENSION
     Dosage: 10 mg, qd
     Route: 048
     Dates: start: 20090316

REACTIONS (2)
  - Injection site haemorrhage [Unknown]
  - Injection site pain [Unknown]
